FAERS Safety Report 7137915-X (Version None)
Quarter: 2010Q4

REPORT INFORMATION
  Report Type: 
  Country: None (occurrence: None)
  Receive Date: 20101103
  Receipt Date: 20100830
  Transmission Date: 20110411
  Serious: Yes (Other)
  Sender: FDA-Public Use
  Company Number: 2010S1001328

PATIENT
  Age: 81 Year
  Sex: Male

DRUGS (3)
  1. CUBICIN [Suspect]
     Indication: DEVICE RELATED INFECTION
     Dosage: 550 MG, Q24H; IV
     Route: 042
     Dates: start: 20100707, end: 20100725
  2. CELEBREX [Concomitant]
  3. LEVAQUIN [Concomitant]

REACTIONS (1)
  - EOSINOPHILIC PNEUMONIA [None]
